FAERS Safety Report 9657772 (Version 1)
Quarter: 2013Q4

REPORT INFORMATION
  Report Type: Spontaneous
  Country: CN (occurrence: None)
  Receive Date: 20131029
  Receipt Date: 20131029
  Transmission Date: 20140711
  Serious: Yes (Other)
  Sender: FDA-Public Use
  Company Number: 2013P1020545

PATIENT
  Sex: 0

DRUGS (1)
  1. ZINACEF [Suspect]
     Indication: INFECTION PROPHYLAXIS
     Dosage: 1.5 GM ; X 2 ;IV
     Route: 042
     Dates: end: 20130905

REACTIONS (3)
  - Haematuria [None]
  - Product quality issue [None]
  - Urinary sediment present [None]
